FAERS Safety Report 5709708-9 (Version None)
Quarter: 2008Q2

REPORT INFORMATION
  Report Type: 
  Country: None (occurrence: None)
  Receive Date: 20080418
  Receipt Date: 20080409
  Transmission Date: 20081010
  Serious: Yes (Other)
  Sender: FDA-Public Use
  Company Number: PHEH2008US03725

PATIENT
  Sex: Male

DRUGS (5)
  1. AREDIA [Suspect]
     Indication: METASTASES TO BONE
     Dosage: 90 MG, QMO
     Route: 042
     Dates: start: 19991201, end: 20020101
  2. ZOMETA [Suspect]
     Indication: METASTASES TO BONE
     Dosage: 4 MG, QMO
     Route: 042
     Dates: start: 20020201, end: 20050101
  3. MELPHALAN [Concomitant]
     Dates: start: 19991201, end: 20020101
  4. PREDNISONE [Concomitant]
     Dates: start: 19991201, end: 20020101
  5. THALIDOMIDE [Concomitant]
     Dosage: UNK, UNK
     Dates: start: 20020201, end: 20050101

REACTIONS (6)
  - BONE DEBRIDEMENT [None]
  - BONE DISORDER [None]
  - DENTURE WEARER [None]
  - OSTEONECROSIS [None]
  - RENAL DISORDER [None]
  - TOOTH EXTRACTION [None]
